FAERS Safety Report 9171330 (Version 1)
Quarter: 2013Q1

REPORT INFORMATION
  Report Type: Spontaneous
  Country: US (occurrence: None)
  Receive Date: 20130318
  Receipt Date: 20130318
  Transmission Date: 20140127
  Serious: No
  Sender: FDA-Public Use
  Company Number: None

PATIENT
  Age: 81 Year
  Sex: Female

DRUGS (1)
  1. LUNESTA, 1 MG, SUNOVION [Suspect]
     Indication: INSOMNIA
     Dosage: 1 DAY
     Route: 048
     Dates: start: 20130208, end: 20130209

REACTIONS (4)
  - Drug hypersensitivity [None]
  - Dyspnoea [None]
  - Erythema [None]
  - Swelling face [None]
